FAERS Safety Report 12906717 (Version 3)
Quarter: 2016Q4

REPORT INFORMATION
  Report Type: Spontaneous
  Country: CH (occurrence: CH)
  Receive Date: 20161103
  Receipt Date: 20161122
  Transmission Date: 20170207
  Serious: Yes (Life-Threatening, Hospitalization)
  Sender: FDA-Public Use
  Company Number: CH-PFIZER INC-2016506274

PATIENT
  Age: 72 Year
  Sex: Female

DRUGS (14)
  1. BISOPROLOL [Concomitant]
     Active Substance: BISOPROLOL
     Dosage: UNK
  2. PREDNISON [Concomitant]
     Active Substance: PREDNISONE
     Dosage: UNK
  3. XARELTO [Concomitant]
     Active Substance: RIVAROXABAN
     Dosage: UNK
     Dates: start: 201608
  4. ASPIRIN CARDIO [Concomitant]
     Active Substance: ASPIRIN
     Dosage: 100 MG, DAILY
     Route: 048
     Dates: start: 201607
  5. MESTINON [Concomitant]
     Active Substance: PYRIDOSTIGMINE BROMIDE
     Dosage: UNK
  6. PANTOZOL [Concomitant]
     Active Substance: PANTOPRAZOLE SODIUM
     Dosage: UNK
  7. CORDARONE [Suspect]
     Active Substance: AMIODARONE HYDROCHLORIDE
     Indication: ATRIAL FIBRILLATION
     Dosage: ASCENDING/INCREASING DOSE
     Route: 065
     Dates: start: 20160814, end: 20160817
  8. PLAVIX [Concomitant]
     Active Substance: CLOPIDOGREL BISULFATE
     Dosage: UNK
     Dates: start: 201607
  9. JANUVIA [Concomitant]
     Active Substance: SITAGLIPTIN PHOSPHATE
     Dosage: UNK
  10. IMUREK [Concomitant]
     Active Substance: AZATHIOPRINE
     Dosage: UNK
  11. VITAMIN D3 [Concomitant]
     Active Substance: CHOLECALCIFEROL
     Dosage: UNK
  12. RAMIPRIL. [Concomitant]
     Active Substance: RAMIPRIL
     Dosage: UNK
  13. ATORVASTATIN [Concomitant]
     Active Substance: ATORVASTATIN
     Dosage: UNK
  14. METFORMIN [Concomitant]
     Active Substance: METFORMIN HYDROCHLORIDE
     Dosage: UNK

REACTIONS (5)
  - Electrocardiogram T wave inversion [Unknown]
  - Drug prescribing error [Unknown]
  - Electrocardiogram QT prolonged [Unknown]
  - Torsade de pointes [Recovered/Resolved]
  - Syncope [Recovered/Resolved]

NARRATIVE: CASE EVENT DATE: 20160817
